FAERS Safety Report 24828449 (Version 1)
Quarter: 2025Q1

REPORT INFORMATION
  Report Type: Report from Study
  Country: GB (occurrence: GB)
  Receive Date: 20250110
  Receipt Date: 20250110
  Transmission Date: 20250408
  Serious: Yes (Other)
  Sender: UCB
  Company Number: GB-UCBSA-2024063366

PATIENT
  Sex: Female

DRUGS (1)
  1. BIMEKIZUMAB [Suspect]
     Active Substance: BIMEKIZUMAB
     Indication: Psoriatic arthropathy
     Dosage: 320 MILLIGRAM, EV 4 WEEKS
     Dates: start: 20241022, end: 20241119

REACTIONS (5)
  - Colitis [Not Recovered/Not Resolved]
  - Off label use [Unknown]
  - Arthralgia [Not Recovered/Not Resolved]
  - Product availability issue [Unknown]
  - Therapy interrupted [Unknown]

NARRATIVE: CASE EVENT DATE: 20240101
